FAERS Safety Report 12237395 (Version 1)
Quarter: 2016Q2

REPORT INFORMATION
  Report Type: Spontaneous
  Country: BR (occurrence: BR)
  Receive Date: 20160405
  Receipt Date: 20160405
  Transmission Date: 20160815
  Serious: Yes (Death, Hospitalization, Other)
  Sender: FDA-Public Use
  Company Number: BR-PFIZER INC-2014205336

PATIENT
  Age: 83 Year
  Sex: Male

DRUGS (3)
  1. SUTENT [Suspect]
     Active Substance: SUNITINIB MALATE
     Dosage: 25 MG, CYCLE 3X1
     Route: 048
  2. CODEINE [Concomitant]
     Active Substance: CODEINE
     Indication: PAIN
     Dosage: UNK
     Dates: start: 2011
  3. SUTENT [Suspect]
     Active Substance: SUNITINIB MALATE
     Indication: METASTATIC RENAL CELL CARCINOMA
     Dosage: 37.5 MG, CONTINUOUS
     Route: 048
     Dates: start: 20140303

REACTIONS (9)
  - Metastatic renal cell carcinoma [Fatal]
  - Abdominal pain [Not Recovered/Not Resolved]
  - Asthenia [Not Recovered/Not Resolved]
  - Tongue injury [Not Recovered/Not Resolved]
  - Syncope [Not Recovered/Not Resolved]
  - Glossodynia [Recovering/Resolving]
  - Disease progression [Fatal]
  - Hypophagia [Not Recovered/Not Resolved]
  - Throat lesion [Recovering/Resolving]

NARRATIVE: CASE EVENT DATE: 2014
